FAERS Safety Report 14942916 (Version 3)
Quarter: 2018Q2

REPORT INFORMATION
  Report Type: Spontaneous
  Country: JP (occurrence: JP)
  Receive Date: 20180528
  Receipt Date: 20180612
  Transmission Date: 20180711
  Serious: Yes (Hospitalization, Other)
  Sender: FDA-Public Use
  Company Number: JP-BEH-2018091034

PATIENT
  Age: 18 Year
  Sex: Male

DRUGS (4)
  1. IDELVION [Suspect]
     Active Substance: COAGULATION FACTOR IX RECOMBINANT HUMAN
     Dosage: 4000 IU, SINGLE
     Route: 042
     Dates: start: 20180522, end: 20180522
  2. FACTOR IX [Suspect]
     Active Substance: COAGULATION FACTOR IX HUMAN
     Indication: PRODUCT USED FOR UNKNOWN INDICATION
     Dosage: 5000 IU X 3 DAYS
     Route: 065
  3. IDELVION [Suspect]
     Active Substance: COAGULATION FACTOR IX RECOMBINANT HUMAN
     Dosage: 4000 IU, SINGLE
     Route: 042
     Dates: start: 20180525, end: 20180525
  4. IDELVION [Suspect]
     Active Substance: COAGULATION FACTOR IX RECOMBINANT HUMAN
     Indication: PRODUCT USED FOR UNKNOWN INDICATION
     Dosage: 4000 IU, SINGLE
     Route: 042
     Dates: start: 20171212, end: 20171212

REACTIONS (1)
  - Gastrointestinal haemorrhage [Recovered/Resolved]

NARRATIVE: CASE EVENT DATE: 20180518
